FAERS Safety Report 6646422-X (Version None)
Quarter: 2010Q1

REPORT INFORMATION
  Report Type: 
  Country: None (occurrence: None)
  Receive Date: 20100322
  Receipt Date: 20100322
  Transmission Date: 20100710
  Serious: Yes (Other)
  Sender: FDA-Public Use
  Company Number: None

PATIENT
  Sex: Female
  Weight: 52.1637 kg

DRUGS (2)
  1. CELEBREX [Suspect]
     Indication: OSTEOARTHRITIS
     Dosage: 1 A DAY
     Dates: start: 20090717, end: 20090730
  2. CELEBREX [Suspect]
     Indication: PAIN
     Dosage: 1 A DAY
     Dates: start: 20090717, end: 20090730

REACTIONS (1)
  - HALLUCINATION, AUDITORY [None]
